FAERS Safety Report 11340117 (Version 1)
Quarter: 2015Q3

REPORT INFORMATION
  Report Type: Spontaneous
  Country: US (occurrence: None)
  Receive Date: 20150730
  Receipt Date: 20150730
  Transmission Date: 20151125
  Serious: No
  Sender: FDA-Public Use
  Company Number: None

PATIENT
  Age: 25 Year
  Sex: Male

DRUGS (3)
  1. GABAPENTIN. [Suspect]
     Active Substance: GABAPENTIN
     Indication: DEPRESSION
     Route: 048
     Dates: start: 20141130, end: 20150130
  2. LAMOTRIGINE. [Suspect]
     Active Substance: LAMOTRIGINE
     Route: 048
  3. LITHIUM. [Concomitant]
     Active Substance: LITHIUM

REACTIONS (1)
  - Rash maculo-papular [None]

NARRATIVE: CASE EVENT DATE: 20150130
